FAERS Safety Report 15482730 (Version 2)
Quarter: 2018Q4

REPORT INFORMATION
  Report Type: Spontaneous
  Country: US (occurrence: US)
  Receive Date: 20181010
  Receipt Date: 20181025
  Transmission Date: 20190205
  Serious: No
  Sender: FDA-Public Use
  Company Number: US-BAYER-2018-188995

PATIENT
  Age: 77 Year
  Sex: Male
  Weight: 87.98 kg

DRUGS (1)
  1. ZEGERID OTC CAPSULES [Suspect]
     Active Substance: OMEPRAZOLE\SODIUM BICARBONATE
     Indication: GASTROINTESTINAL DISORDER
     Dosage: 1 DF, OM 1CAPULSE IN THE MORNING AFTER FOOD
     Route: 048
     Dates: start: 201809

REACTIONS (4)
  - Poor quality product administered [None]
  - Drug ineffective for unapproved indication [Unknown]
  - Off label use [Unknown]
  - Product taste abnormal [None]
